FAERS Safety Report 6729992-2 (Version None)
Quarter: 2010Q2

REPORT INFORMATION
  Report Type: 
  Country: None (occurrence: None)
  Receive Date: 20100518
  Receipt Date: 20100507
  Transmission Date: 20101027
  Serious: Yes (Hospitalization, Other)
  Sender: FDA-Public Use
  Company Number: US-BAYER-201015210BCC

PATIENT
  Age: 89 Year
  Sex: Male
  Weight: 73 kg

DRUGS (6)
  1. ASPIRIN [Suspect]
     Indication: DRUG USE FOR UNKNOWN INDICATION
     Route: 065
  2. ALKA SELTZER LEMON LIME [Suspect]
     Indication: DYSPEPSIA
     Dosage: AS USED: 2 DF
     Route: 048
     Dates: start: 20100505
  3. ALKA SELTZER LEMON LIME [Suspect]
     Dosage: AS USED: 2 DF
     Route: 048
     Dates: start: 20100401, end: 20100401
  4. HYDROCHLOROTHIAZIDE [Concomitant]
     Route: 065
  5. METOPROLOL TARTRATE [Concomitant]
     Route: 065
  6. ACIPHEX [Concomitant]
     Dosage: IN THE MORNING
     Route: 065

REACTIONS (6)
  - DIVERTICULITIS [None]
  - DIZZINESS [None]
  - LOSS OF CONSCIOUSNESS [None]
  - NAUSEA [None]
  - RECTAL HAEMORRHAGE [None]
  - VOMITING [None]
